FAERS Safety Report 8948576 (Version 2)
Quarter: 2013Q1

REPORT INFORMATION
  Report Type: Spontaneous
  Country: GB (occurrence: None)
  Receive Date: 20121123
  Receipt Date: 20121203
  Transmission Date: 20140127
  Serious: Yes (Life-Threatening, Hospitalization, Other)
  Sender: FDA-Public Use
  Company Number: 2012SUN00253

PATIENT
  Age: 66 Year
  Sex: Male

DRUGS (5)
  1. OCTREOTIDE [Suspect]
     Indication: HYPERINSULINISM
     Route: 058
     Dates: start: 201112
  2. COLECALCIFEROL (VITAMIN D AND VITAMIN D SUBSTANCES) [Concomitant]
  3. LANSOPRAZOLE (LANSOPRAZOLE) [Concomitant]
  4. MIRTAZAPINE (MIRTAZAPINE) [Concomitant]
  5. THIAMINE (THIAMINE AND VITAM B SUBSTANCES) [Concomitant]

REACTIONS (8)
  - Impaired work ability [None]
  - Hypoglycaemia [None]
  - Grand mal convulsion [None]
  - Blood glucagon decreased [None]
  - Psychological factor affecting medical condition [None]
  - Quality of life decreased [None]
  - Therapeutic response decreased [None]
  - Asthenia [None]
